FAERS Safety Report 11446542 (Version 1)
Quarter: 2015Q3

REPORT INFORMATION
  Report Type: Report from Study
  Country: CN (occurrence: CN)
  Receive Date: 20150901
  Receipt Date: 20150901
  Transmission Date: 20151125
  Serious: Yes (Death, Other)
  Sender: FDA-Public Use
  Company Number: CN-ASTELLAS-2015US031165

PATIENT
  Age: 77 Year
  Sex: Male
  Weight: 48 kg

DRUGS (5)
  1. MICAFUNGIN [Suspect]
     Active Substance: MICAFUNGIN
     Route: 042
     Dates: start: 20140328, end: 20140331
  2. MICAFUNGIN [Suspect]
     Active Substance: MICAFUNGIN
     Indication: FUNGAL INFECTION
     Route: 042
     Dates: start: 20140327, end: 20140328
  3. DANAZOL. [Concomitant]
     Active Substance: DANAZOL
     Indication: MYELODYSPLASTIC SYNDROME
     Dosage: UNK UNK, UNKNOWN FREQ.
     Route: 065
  4. CELECOXIB. [Concomitant]
     Active Substance: CELECOXIB
     Indication: GOUT
     Dosage: UNK UNK, UNKNOWN FREQ.
     Route: 065
  5. COLCHICIN [Concomitant]
     Active Substance: COLCHICINE
     Indication: GOUT
     Dosage: UNK UNK, UNKNOWN FREQ.
     Route: 065

REACTIONS (2)
  - Lung infection [Fatal]
  - Respiratory failure [Fatal]

NARRATIVE: CASE EVENT DATE: 20140331
